FAERS Safety Report 10450922 (Version 1)
Quarter: 2014Q3

REPORT INFORMATION
  Report Type: Report from Study
  Country: US (occurrence: US)
  Receive Date: 20140912
  Receipt Date: 20140912
  Transmission Date: 20150326
  Serious: Yes (Other)
  Sender: FDA-Public Use
  Company Number: US-SA-2014SA124315

PATIENT
  Sex: Male

DRUGS (1)
  1. LANTUS [Suspect]
     Active Substance: INSULIN GLARGINE
     Indication: DIABETES MELLITUS
     Route: 065

REACTIONS (8)
  - Knee operation [Unknown]
  - Dysstasia [Unknown]
  - Spondylitis [Unknown]
  - Glycosylated haemoglobin increased [Unknown]
  - Foot operation [Unknown]
  - Hypertension [Unknown]
  - Depression [Unknown]
  - Visual impairment [Unknown]
